FAERS Safety Report 5147744-4 (Version None)
Quarter: 2006Q4

REPORT INFORMATION
  Report Type: 
  Country: None (occurrence: None)
  Receive Date: 20061110
  Receipt Date: 20051026
  Transmission Date: 20070319
  Serious: Yes (Hospitalization)
  Sender: FDA-Public Use
  Company Number: HQWYE297228OCT05

PATIENT
  Sex: Male
  Weight: 49 kg

DRUGS (7)
  1. ENBREL [Suspect]
     Indication: RHEUMATOID ARTHRITIS
     Dosage: ^50 MG/WEEK^ (PRESUMED TO BE 25 MG TWICE WEEKLY)
     Route: 058
     Dates: start: 20051017, end: 20051017
  2. ISCOTIN [Concomitant]
     Indication: ANTIBIOTIC PROPHYLAXIS
     Route: 048
     Dates: start: 20050905, end: 20051020
  3. MUCOSTA [Concomitant]
     Dosage: UNKNOWN
     Route: 048
  4. FOLIAMIN [Concomitant]
     Route: 048
     Dates: start: 20050801, end: 20051020
  5. PREDONINE [Concomitant]
     Indication: RHEUMATOID ARTHRITIS
     Route: 048
     Dates: start: 20030201
  6. RHEUMATREX [Concomitant]
     Indication: RHEUMATOID ARTHRITIS
     Dosage: DOSE AND FREQUENCY NOT SPECIFIED
     Route: 048
     Dates: start: 20050705, end: 20051020
  7. LOXONIN [Concomitant]
     Indication: RHEUMATOID ARTHRITIS
     Route: 048
     Dates: start: 20021101, end: 20051020

REACTIONS (1)
  - PNEUMOTHORAX [None]
